FAERS Safety Report 7372986-7 (Version None)
Quarter: 2011Q1

REPORT INFORMATION
  Report Type: 
  Country: None (occurrence: None)
  Receive Date: 20110324
  Receipt Date: 20110321
  Transmission Date: 20110831
  Serious: Yes (Other)
  Sender: FDA-Public Use
  Company Number: FR-PFIZER INC-2011061347

PATIENT
  Age: 49 Year
  Sex: Male

DRUGS (2)
  1. RHINADVIL [Suspect]
     Indication: NASOPHARYNGITIS
     Dosage: UNK
     Route: 065
  2. RHINOFLUIMUCIL [Suspect]
     Indication: NASOPHARYNGITIS
     Dosage: UNK
     Route: 065

REACTIONS (3)
  - TRANSIENT ISCHAEMIC ATTACK [None]
  - MALAISE [None]
  - CEREBROVASCULAR ACCIDENT [None]
